FAERS Safety Report 5106860-3 (Version None)
Quarter: 2006Q3

REPORT INFORMATION
  Report Type: 
  Country: None (occurrence: None)
  Receive Date: 20060913
  Receipt Date: 20060905
  Transmission Date: 20061208
  Serious: Yes (Other)
  Sender: FDA-Public Use
  Company Number: CA200609001095

PATIENT
  Age: 24 Year
  Sex: Female

DRUGS (5)
  1. ZYPREXA ZYDIS [Suspect]
     Indication: SCHIZOPHRENIA, PARANOID TYPE
     Dosage: 10 MG, DAILY (1/D), ORAL; 20 MG, DAILY (1/D), ORAL
     Route: 048
     Dates: start: 20060310, end: 20060312
  2. ZYPREXA ZYDIS [Suspect]
     Indication: SCHIZOPHRENIA, PARANOID TYPE
     Dosage: 10 MG, DAILY (1/D), ORAL; 20 MG, DAILY (1/D), ORAL
     Route: 048
     Dates: start: 20060313
  3. CANNABIS (CANNABIS) [Concomitant]
  4. VITAMINS [Concomitant]
  5. FERROUS SULFATE TAB [Concomitant]

REACTIONS (4)
  - CAESAREAN SECTION [None]
  - DRUG EXPOSURE DURING PREGNANCY [None]
  - PREMATURE LABOUR [None]
  - UTERINE HAEMORRHAGE [None]
